FAERS Safety Report 20057442 (Version 9)
Quarter: 2023Q2

REPORT INFORMATION
  Report Type: Spontaneous
  Country: US (occurrence: US)
  Receive Date: 20211111
  Receipt Date: 20230504
  Transmission Date: 20230722
  Serious: Yes (Hospitalization, Other)
  Sender: FDA-Public Use
  Company Number: US-SA-SAC20211109001070

PATIENT
  Age: 79 Year
  Sex: Female

DRUGS (1)
  1. DUPIXENT [Suspect]
     Active Substance: DUPILUMAB
     Indication: Psoriasis
     Dosage: 300 MG, QOW
     Route: 058
     Dates: start: 202109

REACTIONS (10)
  - Small intestinal obstruction [Unknown]
  - Macular degeneration [Not Recovered/Not Resolved]
  - Skin cancer [Unknown]
  - Hair texture abnormal [Unknown]
  - Memory impairment [Unknown]
  - Hair disorder [Not Recovered/Not Resolved]
  - Eye disorder [Not Recovered/Not Resolved]
  - Eczema [Recovering/Resolving]
  - Product use in unapproved indication [Unknown]
  - Product dose omission in error [Unknown]

NARRATIVE: CASE EVENT DATE: 20210901
